FAERS Safety Report 20933412 (Version 4)
Quarter: 2024Q2

REPORT INFORMATION
  Report Type: Report from Study
  Country: CO (occurrence: CO)
  Receive Date: 20220608
  Receipt Date: 20240417
  Transmission Date: 20240716
  Serious: Yes (Life-Threatening, Hospitalization, Other)
  Sender: FDA-Public Use
  Company Number: CO-ABBVIE-22K-036-4423297-00

PATIENT
  Sex: Male
  Weight: 54 kg

DRUGS (1)
  1. ZEMPLAR [Suspect]
     Active Substance: PARICALCITOL
     Indication: Hyperparathyroidism secondary
     Dosage: FORM STRENGTH: 5 MILLIGRAM
     Route: 042
     Dates: start: 20160831, end: 20220723

REACTIONS (10)
  - Internal haemorrhage [Recovering/Resolving]
  - Cardiac disorder [Recovering/Resolving]
  - Cardiac valve disease [Recovering/Resolving]
  - Psychological trauma [Not Recovered/Not Resolved]
  - Epistaxis [Recovering/Resolving]
  - Toxicity to various agents [Recovering/Resolving]
  - Coagulopathy [Recovering/Resolving]
  - Nervousness [Not Recovered/Not Resolved]
  - Complication associated with device [Recovering/Resolving]
  - Eye haemorrhage [Recovering/Resolving]

NARRATIVE: CASE EVENT DATE: 20220101
